FAERS Safety Report 7132550-1 (Version None)
Quarter: 2010Q4

REPORT INFORMATION
  Report Type: 
  Country: None (occurrence: None)
  Receive Date: 20101202
  Receipt Date: 20101123
  Transmission Date: 20110411
  Serious: Yes (Other)
  Sender: FDA-Public Use
  Company Number: PHHY2010CH79451

PATIENT
  Age: 70 Year
  Sex: Male

DRUGS (4)
  1. RITALIN [Suspect]
     Indication: DYSTHYMIC DISORDER
     Dosage: 40 MG, QD
     Dates: start: 20050101
  2. MODURETIC 5-50 [Concomitant]
     Dosage: UNK
  3. XANAX [Concomitant]
     Dosage: 1 MG, QD
  4. BEROTEC [Concomitant]
     Dosage: 1 MG, QD

REACTIONS (2)
  - BLOOD CREATINE PHOSPHOKINASE INCREASED [None]
  - MUSCLE TIGHTNESS [None]
